FAERS Safety Report 24771414 (Version 1)
Quarter: 2024Q4

REPORT INFORMATION
  Report Type: Spontaneous
  Country: US (occurrence: None)
  Receive Date: 20241224
  Receipt Date: 20241224
  Transmission Date: 20250114
  Serious: Yes (Other)
  Sender: Public
  Company Number: None

PATIENT
  Age: 62 Year
  Sex: Female
  Weight: 112.5 kg

DRUGS (8)
  1. GADOLINIUM [Suspect]
     Active Substance: GADOLINIUM
     Indication: Contrast media deposition
     Route: 030
     Dates: start: 20241206, end: 20241206
  2. ARMOUR THYROID [Concomitant]
     Active Substance: THYROID, PORCINE
  3. VITAMIN D3 [Concomitant]
     Active Substance: CHOLECALCIFEROL
  4. CALCIUM [Concomitant]
     Active Substance: CALCIUM
  5. MAGNESIUM [Concomitant]
     Active Substance: MAGNESIUM
  6. ZINC [Concomitant]
     Active Substance: ZINC
  7. TOCOPHEROL [Concomitant]
     Active Substance: TOCOPHEROL
  8. SELENIUM [Concomitant]
     Active Substance: SELENIUM

REACTIONS (5)
  - Oropharyngeal pain [None]
  - Fatigue [None]
  - Arthralgia [None]
  - Joint stiffness [None]
  - Contrast media reaction [None]

NARRATIVE: CASE EVENT DATE: 20241208
